FAERS Safety Report 9125136 (Version 8)
Quarter: 2014Q1

REPORT INFORMATION
  Report Type: Spontaneous
  Country: US (occurrence: US)
  Receive Date: 20130117
  Receipt Date: 20140121
  Transmission Date: 20141002
  Serious: Yes (Hospitalization, Disabling, Other)
  Sender: FDA-Public Use
  Company Number: US-009507513-1206USA02276

PATIENT
  Sex: Female
  Weight: 70.3 kg

DRUGS (7)
  1. FOSAMAX [Suspect]
     Indication: OSTEOPOROSIS
     Dosage: 10 MG, QD
     Route: 048
     Dates: start: 199608, end: 2000
  2. FOSAMAX [Suspect]
     Dosage: 70 MG, QW
     Route: 048
     Dates: start: 2000
  3. ALENDRONATE SODIUM [Suspect]
     Indication: OSTEOPOROSIS
     Dosage: 70 MG, UNK
     Route: 048
     Dates: start: 200810, end: 201006
  4. VITAMIN D (UNSPECIFIED) [Concomitant]
     Indication: OSTEOPOROSIS
     Dosage: 50000 IU, QW
     Dates: start: 201007, end: 201106
  5. PREMARIN [Concomitant]
     Indication: OSTEOPOROSIS
     Dosage: 0.3-0.625 MG, QD
  6. ALLEGRA [Concomitant]
     Indication: SEASONAL ALLERGY
     Dosage: 180 MG, QD
  7. NASONEX [Concomitant]
     Indication: SEASONAL ALLERGY
     Dosage: 50 MICROGRAM, 1 SPRAY EACH NOSTRIL
     Route: 045

REACTIONS (70)
  - Femur fracture [Unknown]
  - Internal fixation of fracture [Unknown]
  - Knee operation [Unknown]
  - Knee operation [Unknown]
  - Catheterisation cardiac [Unknown]
  - Rheumatoid arthritis [Not Recovered/Not Resolved]
  - Clostridium difficile colitis [Unknown]
  - Dehydration [Unknown]
  - Femur fracture [Unknown]
  - Osteomyelitis [Not Recovered/Not Resolved]
  - Low turnover osteopathy [Unknown]
  - Tooth extraction [Unknown]
  - Abscess jaw [Unknown]
  - Periodontitis [Unknown]
  - Biopsy bone [Unknown]
  - Debridement [Unknown]
  - Foot fracture [Unknown]
  - Adverse event [Unknown]
  - Adverse event [Unknown]
  - Osteopenia [Unknown]
  - Foot fracture [Unknown]
  - Hypertension [Unknown]
  - Dyslipidaemia [Unknown]
  - White blood cell count increased [Unknown]
  - Platelet count increased [Unknown]
  - Poor quality sleep [Unknown]
  - Restless legs syndrome [Unknown]
  - Insomnia [Unknown]
  - Drug intolerance [Unknown]
  - Osteoarthritis [Unknown]
  - Rheumatoid arthritis [Unknown]
  - Dental necrosis [Unknown]
  - Impaired healing [Unknown]
  - Tooth resorption [Unknown]
  - Hiatus hernia [Unknown]
  - Pain [Not Recovered/Not Resolved]
  - Abscess jaw [Unknown]
  - Cystitis [Unknown]
  - Essential tremor [Unknown]
  - Anaemia of chronic disease [Unknown]
  - Rheumatoid arthritis [Unknown]
  - Pulmonary hypertension [Unknown]
  - Liver function test abnormal [Unknown]
  - Vitamin D deficiency [Unknown]
  - Staphylococcal infection [Recovering/Resolving]
  - Incision site abscess [Recovering/Resolving]
  - Skeletal injury [Unknown]
  - Benign uterine neoplasm [Unknown]
  - Hysterectomy [Unknown]
  - Sensitivity of teeth [Unknown]
  - Tooth disorder [Unknown]
  - Gingival bleeding [Unknown]
  - Sensitivity of teeth [Unknown]
  - Dental plaque [Unknown]
  - Blood iron decreased [Unknown]
  - Gingival recession [Unknown]
  - Liver function test abnormal [Unknown]
  - Endodontic procedure [Unknown]
  - Drug intolerance [Unknown]
  - Gastrooesophageal reflux disease [Unknown]
  - Drug ineffective [Unknown]
  - Alopecia [Unknown]
  - Fall [Unknown]
  - Urinary tract infection [Unknown]
  - Excoriation [Unknown]
  - Oedema peripheral [Unknown]
  - Diarrhoea [Unknown]
  - Nausea [Unknown]
  - Vomiting [Unknown]
  - Oedema peripheral [Unknown]
